FAERS Safety Report 12161659 (Version 5)
Quarter: 2017Q4

REPORT INFORMATION
  Report Type: Spontaneous
  Country: JP (occurrence: JP)
  Receive Date: 20160309
  Receipt Date: 20171009
  Transmission Date: 20180320
  Serious: Yes (Other)
  Sender: FDA-Public Use
  Company Number: JP-RECORDATI RARE DISEASES-JP-R13005-16-00034

PATIENT
  Age: 0 Year
  Sex: Female
  Weight: 1.03 kg

DRUGS (9)
  1. RESPIA [Suspect]
     Active Substance: CAFFEINE
     Route: 042
     Dates: start: 20151117, end: 20151120
  2. EPOETIN ALFA [Concomitant]
     Active Substance: ERYTHROPOIETIN
     Indication: ANAEMIA NEONATAL
     Route: 058
     Dates: start: 20151124, end: 20160108
  3. INCREMIN [Concomitant]
     Active Substance: FERRIC PYROPHOSPHATE
     Indication: ANAEMIA NEONATAL
     Route: 065
  4. INDOCIN [Suspect]
     Active Substance: INDOMETHACIN
     Indication: PATENT DUCTUS ARTERIOSUS
     Route: 042
     Dates: start: 20151111, end: 20151113
  5. RESPIA [Suspect]
     Active Substance: CAFFEINE
     Indication: INFANTILE APNOEA
     Route: 042
     Dates: start: 20151112, end: 20151112
  6. RESPIA [Suspect]
     Active Substance: CAFFEINE
     Route: 048
     Dates: start: 20151121, end: 20151204
  7. RESPIA [Suspect]
     Active Substance: CAFFEINE
     Route: 042
     Dates: start: 20151113, end: 20151116
  8. RESPIA [Suspect]
     Active Substance: CAFFEINE
     Route: 048
     Dates: start: 20151205, end: 20151217
  9. VICCILLIN [Concomitant]
     Active Substance: AMPICILLIN
     Indication: INFECTION
     Route: 065
     Dates: start: 20151109, end: 20151112

REACTIONS (4)
  - Renal impairment [Recovered/Resolved]
  - Infantile apnoea [Recovering/Resolving]
  - Blood creatine phosphokinase increased [Recovering/Resolving]
  - Blood caffeine increased [Unknown]

NARRATIVE: CASE EVENT DATE: 201511
